FAERS Safety Report 9270028 (Version 10)
Quarter: 2013Q3

REPORT INFORMATION
  Report Type: Spontaneous
  Country: US (occurrence: US)
  Receive Date: 20130503
  Receipt Date: 20130722
  Transmission Date: 20140515
  Serious: Yes (Death, Hospitalization, Other)
  Sender: FDA-Public Use
  Company Number: US-JNJFOC-20130500038

PATIENT
  Age: 75 Year
  Sex: Female
  Weight: 50.2 kg

DRUGS (10)
  1. XARELTO [Suspect]
     Indication: HIP ARTHROPLASTY
     Dosage: FIRST DOSE AT 6.50PM
     Route: 048
     Dates: start: 20130422, end: 20130422
  2. XARELTO [Suspect]
     Indication: THROMBOSIS PROPHYLAXIS
     Dosage: FIRST DOSE AT 6.50PM
     Route: 048
     Dates: start: 20130422, end: 20130422
  3. CELEBREX [Suspect]
     Indication: PRODUCT USED FOR UNKNOWN INDICATION
     Dosage: DOSE 400MG
     Route: 048
     Dates: start: 20130422, end: 20130424
  4. ASPIRIN [Suspect]
     Indication: PRODUCT USED FOR UNKNOWN INDICATION
     Route: 048
  5. PRADAXA [Suspect]
     Indication: PRODUCT USED FOR UNKNOWN INDICATION
     Route: 048
     Dates: end: 20130422
  6. LOVENOX [Suspect]
     Indication: PRODUCT USED FOR UNKNOWN INDICATION
     Dosage: DOSE GIVEN AT 10 AM
     Route: 065
     Dates: start: 20130423, end: 20130423
  7. DILTIAZEM CD [Concomitant]
     Dosage: DOSE AT 22:00
     Route: 048
     Dates: start: 20130422
  8. AMIODARONE [Concomitant]
     Dosage: DOSE AT 22:00
     Route: 048
     Dates: start: 20130422, end: 20130424
  9. LOHEXOL [Concomitant]
     Route: 065
     Dates: start: 20130426
  10. LOSARTAN [Concomitant]
     Route: 065
     Dates: start: 20130422, end: 20130424

REACTIONS (7)
  - Death [Fatal]
  - Gastrointestinal haemorrhage [Unknown]
  - Procedural haemorrhage [Unknown]
  - Condition aggravated [Unknown]
  - Rectal haemorrhage [Unknown]
  - Haematoma [Unknown]
  - Blood creatinine increased [Unknown]
